FAERS Safety Report 10254827 (Version 1)
Quarter: 2014Q2

REPORT INFORMATION
  Report Type: Spontaneous
  Country: FR (occurrence: FR)
  Receive Date: 20140624
  Receipt Date: 20140624
  Transmission Date: 20141212
  Serious: Yes (Other)
  Sender: FDA-Public Use
  Company Number: FR-GE HEALTHCARE MEDICAL DIAGNOSTICS-OMPQ-PR-1406S-0649

PATIENT
  Age: 29 Year
  Sex: Female

DRUGS (2)
  1. OMNIPAQUE [Suspect]
     Indication: CENTRAL NERVOUS SYSTEM NEOPLASM
     Route: 042
     Dates: start: 20140520, end: 20140520
  2. OMNIPAQUE [Suspect]
     Indication: DIAGNOSTIC PROCEDURE

REACTIONS (3)
  - Extravasation [Recovered/Resolved]
  - Induration [Recovered/Resolved]
  - Inflammation [Recovered/Resolved]
